FAERS Safety Report 8765155 (Version 4)
Quarter: 2013Q1

REPORT INFORMATION
  Report Type: Report from Study
  Country: JP (occurrence: JP)
  Receive Date: 20120903
  Receipt Date: 20130117
  Transmission Date: 20140127
  Serious: Yes (Hospitalization, Other)
  Sender: FDA-Public Use
  Company Number: JP-009507513-2012SP025007

PATIENT
  Age: 51 Year
  Sex: Male
  Weight: 76 kg

DRUGS (27)
  1. PEGINTRON [Suspect]
     Indication: CHRONIC HEPATITIS C
     Dosage: 1.5 MICROGRAM PER KILOGRAM, QW
     Route: 058
     Dates: start: 20120315, end: 20120412
  2. PEGINTRON [Suspect]
     Dosage: 1.5 MICROGRAM PER KILOGRAM, QW
     Route: 058
     Dates: start: 20120510
  3. REBETOL [Suspect]
     Indication: CHRONIC HEPATITIS C
     Dosage: 800 MG, QD
     Route: 048
     Dates: start: 20120315, end: 20120323
  4. REBETOL [Suspect]
     Dosage: 400 MG, QD
     Route: 048
     Dates: start: 20120324, end: 20120419
  5. REBETOL [Suspect]
     Dosage: 200 MG, QD
     Route: 048
     Dates: start: 20120510, end: 20120523
  6. REBETOL [Suspect]
     Dosage: 400 MG, QD
     Route: 048
     Dates: start: 20120524
  7. TELAVIC [Suspect]
     Indication: CHRONIC HEPATITIS C
     Dosage: 2250 MG, QD
     Route: 048
     Dates: start: 20120315, end: 20120323
  8. TELAVIC [Suspect]
     Dosage: 1500 MG, QD
     Route: 048
     Dates: start: 20120324, end: 20120409
  9. TELAVIC [Suspect]
     Dosage: 750 MG, QD
     Route: 048
     Dates: start: 20120410, end: 20120419
  10. TELAVIC [Suspect]
     Dosage: 500 MG, QD
     Route: 048
     Dates: start: 20120510, end: 20120514
  11. LOXOPROFEN [Concomitant]
     Indication: PROPHYLAXIS
     Dosage: FORMULATION: POR, CUMULATIVE DOSE: 900 MG
     Route: 048
     Dates: start: 20120315, end: 20120328
  12. TAKEPRON [Concomitant]
     Indication: PROPHYLAXIS
     Dosage: FORMULATION: POR, CUMULATIVE DOSE: 75 MG
     Route: 048
     Dates: start: 20120315, end: 20120419
  13. TAKEPRON [Concomitant]
     Dosage: FORMULATION: POR, 15 MG, QD
     Route: 048
     Dates: start: 20120510, end: 20120530
  14. TALION (BEPOTASTINE BESYLATE) [Concomitant]
     Indication: PROPHYLAXIS
     Dosage: 20 MG, QD
     Route: 048
     Dates: start: 20120315, end: 20120419
  15. TALION (BEPOTASTINE BESYLATE) [Concomitant]
     Dosage: 20 MG, QD
     Route: 048
     Dates: start: 20120510
  16. AZUNOL (SODIUM GUALENATE) [Concomitant]
     Indication: NASOPHARYNGITIS
     Dosage: UNK, PRN
     Route: 049
     Dates: start: 20120614, end: 20120621
  17. PL-GRANULES [Concomitant]
     Indication: NASOPHARYNGITIS
     Dosage: 3 MG, QD
     Route: 048
     Dates: start: 20120614, end: 20120621
  18. MUCODYNE [Concomitant]
     Indication: NASOPHARYNGITIS
     Dosage: 1500 MG, QD
     Route: 048
     Dates: start: 20120614, end: 20120802
  19. MUCODYNE [Concomitant]
     Indication: ASTHMA
     Dosage: 1500 MG, QD
     Route: 048
     Dates: start: 20120830
  20. ASTOMIN [Concomitant]
     Indication: NASOPHARYNGITIS
     Dosage: 30 MG, QD
     Route: 048
     Dates: start: 20120621, end: 20120802
  21. ASTOMIN [Concomitant]
     Indication: ASTHMA
     Dosage: 60 MG, QD
     Route: 048
     Dates: start: 20120830
  22. MUCOSOLVAN [Concomitant]
     Indication: NASOPHARYNGITIS
     Dosage: 45 MG, QD
     Route: 048
     Dates: start: 20120621, end: 20120712
  23. SINGULAIR FINE GRANULES 4MG [Concomitant]
     Indication: ASTHMA
     Dosage: 10 MG, QD
     Route: 048
     Dates: start: 20120802, end: 20120816
  24. SINGULAIR FINE GRANULES 4MG [Concomitant]
     Dosage: 10 MG, QD
     Route: 048
     Dates: start: 20120830
  25. LAC-B [Concomitant]
     Dosage: 3 G, QD
     Route: 048
     Dates: start: 20120802
  26. URSO [Concomitant]
     Indication: HEPATITIS C
     Dosage: 600 MG, QD
     Route: 048
     Dates: start: 20120809
  27. ADOAIR [Concomitant]
     Indication: ASTHMA
     Dosage: 500 MICROGRAM, QD, INHALATION
     Dates: start: 20120816

REACTIONS (4)
  - Rash [Recovered/Resolved]
  - Renal impairment [Recovered/Resolved]
  - Rash [Recovering/Resolving]
  - Rash [Recovering/Resolving]
